FAERS Safety Report 8406171-4 (Version None)
Quarter: 2012Q2

REPORT INFORMATION
  Report Type: 
  Country: None (occurrence: None)
  Receive Date: 20120323
  Receipt Date: 20110613
  Transmission Date: 20120825
  Serious: Yes (Other)
  Sender: FDA-Public Use
  Company Number: 163-21880-11052526

PATIENT
  Age: 68 Year
  Sex: Male

DRUGS (8)
  1. METOPROLOL SUCCINATE [Concomitant]
  2. SINGULAIR [Concomitant]
  3. COLAYS (ALL OTHER THERAPEUTIC PRODUCTS) [Concomitant]
  4. COMBIVENT [Concomitant]
  5. PLAVIX [Concomitant]
  6. REVLIMID [Suspect]
     Indication: MYELOFIBROSIS
     Dosage: 10 MG, 1 IN 1 D, PO
     Route: 048
     Dates: start: 20110425, end: 20110512
  7. TRICOR [Concomitant]
  8. ASPIRIN [Concomitant]

REACTIONS (4)
  - BLISTER [None]
  - HYPERSENSITIVITY [None]
  - RASH [None]
  - DRY SKIN [None]
